FAERS Safety Report 4557611-2 (Version None)
Quarter: 2005Q1

REPORT INFORMATION
  Report Type: 
  Country: None (occurrence: None)
  Receive Date: 20050120
  Receipt Date: 20041215
  Transmission Date: 20050727
  Serious: Yes (Life-Threatening, Disabling)
  Sender: FDA-Public Use
  Company Number: US-MERCK-0412USA01937

PATIENT
  Age: 44 Year
  Sex: Male

DRUGS (15)
  1. VIOXX [Suspect]
     Indication: ARTHRITIS
     Route: 048
     Dates: start: 20020101, end: 20030101
  2. VIOXX [Suspect]
     Route: 048
     Dates: start: 20030101
  3. SINGULAIR [Concomitant]
     Route: 065
  4. LORTAB [Concomitant]
     Route: 065
  5. SOMA [Concomitant]
     Route: 065
  6. CLARITIN-D [Concomitant]
     Route: 065
  7. VALIUM [Concomitant]
     Route: 065
  8. ZANTAC [Concomitant]
     Route: 065
  9. PATANOL [Concomitant]
     Route: 065
  10. CLONAZEPAM [Concomitant]
     Route: 065
  11. HYDROCORTISONE [Concomitant]
     Route: 065
  12. SEROQUEL [Concomitant]
     Route: 065
  13. [THERAPY UNSPECIFIED] [Concomitant]
     Route: 065
  14. [THERAPY UNSPECIFIED] [Concomitant]
     Route: 065
  15. ALBUTEROL [Concomitant]
     Route: 065

REACTIONS (8)
  - CHEST PAIN [None]
  - DYSPNOEA [None]
  - HEADACHE [None]
  - LOSS OF CONSCIOUSNESS [None]
  - PAIN IN EXTREMITY [None]
  - RENAL CYST [None]
  - RENAL IMPAIRMENT [None]
  - UPPER RESPIRATORY TRACT INFECTION [None]
